FAERS Safety Report 9890790 (Version 1)
Quarter: 2014Q1

REPORT INFORMATION
  Report Type: Spontaneous
  Country: IL (occurrence: None)
  Receive Date: 20140210
  Receipt Date: 20140210
  Transmission Date: 20141002
  Serious: Yes (Hospitalization)
  Sender: FDA-Public Use
  Company Number: 2014P1000842

PATIENT
  Age: 17 Year
  Sex: Female

DRUGS (1)
  1. ISOTRETINOIN [Suspect]
     Indication: ACNE

REACTIONS (7)
  - Flank pain [None]
  - Nausea [None]
  - Vomiting [None]
  - Pallor [None]
  - Tenderness [None]
  - Tubulointerstitial nephritis [None]
  - Renal failure acute [None]
